FAERS Safety Report 12613677 (Version 1)
Quarter: 2016Q3

REPORT INFORMATION
  Report Type: Spontaneous
  Country: US (occurrence: None)
  Receive Date: 20160801
  Receipt Date: 20160801
  Transmission Date: 20161109
  Serious: Yes (Disabling)
  Sender: FDA-Public Use
  Company Number: None

PATIENT
  Age: 37 Year
  Sex: Male
  Weight: 86.18 kg

DRUGS (8)
  1. METHYLPREDNISOLONE. [Concomitant]
     Active Substance: METHYLPREDNISOLONE
  2. LIALDA [Concomitant]
     Active Substance: MESALAMINE
  3. ROWASA [Concomitant]
     Active Substance: MESALAMINE
  4. METHOTREXATE. [Concomitant]
     Active Substance: METHOTREXATE
  5. FOLIC ACID. [Concomitant]
     Active Substance: FOLIC ACID
  6. REMICADE [Suspect]
     Active Substance: INFLIXIMAB
     Indication: COLITIS ULCERATIVE
     Dosage: 1 INFUSION EVERY 6 WEEKS INTO A VEIN
     Route: 042
     Dates: start: 20150101, end: 20160328
  7. IRON [Concomitant]
     Active Substance: IRON
  8. ENTYVIO [Concomitant]
     Active Substance: VEDOLIZUMAB

REACTIONS (2)
  - Arthritis [None]
  - Lupus-like syndrome [None]

NARRATIVE: CASE EVENT DATE: 20160201
